FAERS Safety Report 9240779 (Version 1)
Quarter: 2013Q2

REPORT INFORMATION
  Report Type: Spontaneous
  Country: US (occurrence: US)
  Receive Date: 20130419
  Receipt Date: 20130419
  Transmission Date: 20140414
  Serious: Yes (Other)
  Sender: FDA-Public Use
  Company Number: US-ABBOTT-13P-163-1075450-00

PATIENT
  Age: 64 Year
  Sex: Female
  Weight: 58.57 kg

DRUGS (3)
  1. BIAXIN [Suspect]
     Indication: HELICOBACTER INFECTION
     Dosage: ONE TABLET
     Dates: start: 20130317, end: 20130330
  2. LANSOPRAZOLE [Suspect]
     Indication: HELICOBACTER INFECTION
     Route: 048
     Dates: start: 20130317, end: 20130330
  3. AMOXICILLIN [Suspect]
     Indication: HELICOBACTER INFECTION
     Dosage: PINK AND PURPLE CASPULE
     Route: 048

REACTIONS (1)
  - Vision blurred [Not Recovered/Not Resolved]
